FAERS Safety Report 4801647-0 (Version None)
Quarter: 2005Q3

REPORT INFORMATION
  Report Type: 
  Country: None (occurrence: None)
  Receive Date: 20050929
  Receipt Date: 20050719
  Transmission Date: 20060218
  Serious: Yes (Hospitalization)
  Sender: FDA-Public Use
  Company Number: 05P-163-0306103-00

PATIENT
  Age: 88 Year
  Sex: Female
  Weight: 46.7205 kg

DRUGS (4)
  1. HUMIRA [Suspect]
     Indication: RHEUMATOID ARTHRITIS
     Dosage: 40 MG, 1 IN 2 WK, SUBCUTANEOUS
     Route: 058
     Dates: start: 20040101, end: 20050420
  2. ALPRAZOLAM [Concomitant]
  3. ATENOLOL [Concomitant]
  4. ASPIRIN [Concomitant]

REACTIONS (4)
  - ANOREXIA [None]
  - BLOOD PRESSURE INCREASED [None]
  - HERPES ZOSTER [None]
  - WEIGHT DECREASED [None]
